FAERS Safety Report 8107815-7 (Version None)
Quarter: 2012Q1

REPORT INFORMATION
  Report Type: 
  Country: None (occurrence: None)
  Receive Date: 20120202
  Receipt Date: 20120125
  Transmission Date: 20120608
  Serious: Yes (Hospitalization)
  Sender: FDA-Public Use
  Company Number: US-ASTRAZENECA-2010SE31395

PATIENT
  Age: 46 Year
  Sex: Female

DRUGS (2)
  1. NEXIUM [Suspect]
     Route: 048
  2. SEROQUEL [Suspect]
     Route: 048

REACTIONS (7)
  - ABDOMINAL PAIN UPPER [None]
  - INSOMNIA [None]
  - CHEST PAIN [None]
  - ABASIA [None]
  - PAIN [None]
  - VOMITING [None]
  - DRUG DOSE OMISSION [None]
